FAERS Safety Report 4740611-7 (Version None)
Quarter: 2005Q3

REPORT INFORMATION
  Report Type: 
  Country: None (occurrence: None)
  Receive Date: 20050801
  Receipt Date: 20050425
  Transmission Date: 20060218
  Serious: Yes (Hospitalization)
  Sender: FDA-Public Use
  Company Number: 2005-04-2157

PATIENT
  Sex: Female

DRUGS (2)
  1. RIBAVIRIN [Suspect]
     Indication: HEPATITIS C
     Dosage: ORAL
     Route: 048
     Dates: start: 20041001, end: 20050401
  2. PEGASYS [Suspect]
     Indication: HEPATITIS C
     Dates: start: 20041001, end: 20050401

REACTIONS (5)
  - AMNESIA [None]
  - CONTUSION [None]
  - DIARRHOEA [None]
  - INSOMNIA [None]
  - PNEUMONIA [None]
